FAERS Safety Report 7894741-1 (Version None)
Quarter: 2011Q4

REPORT INFORMATION
  Report Type: 
  Country: None (occurrence: None)
  Receive Date: 20111102
  Receipt Date: 20111028
  Transmission Date: 20120403
  Serious: Yes (Hospitalization, Other)
  Sender: FDA-Public Use
  Company Number: 2009-200460-NL

PATIENT
  Age: 39 Year
  Sex: Female
  Weight: 79.3795 kg

DRUGS (6)
  1. CLARITIN [Concomitant]
  2. ZOLOFT [Concomitant]
  3. TOPAMAX [Concomitant]
  4. PRILOSEC [Concomitant]
  5. NUVARING [Suspect]
     Indication: CONTRACEPTION
     Dosage: QM;VAG
     Route: 067
     Dates: start: 20071218, end: 20080801
  6. NUVARING [Suspect]
     Indication: MENORRHAGIA
     Dosage: QM;VAG
     Route: 067
     Dates: start: 20071218, end: 20080801

REACTIONS (35)
  - THROMBOPHLEBITIS [None]
  - HYPOTHYROIDISM [None]
  - MYALGIA [None]
  - PALPITATIONS [None]
  - PRODUCT SUBSTITUTION ISSUE [None]
  - SOMNOLENCE [None]
  - MYOPIA [None]
  - DRUG EFFECT DECREASED [None]
  - PAIN IN EXTREMITY [None]
  - CHEST PAIN [None]
  - OVERWEIGHT [None]
  - GOITRE [None]
  - PRESBYOPIA [None]
  - CERVICAL DYSPLASIA [None]
  - ANXIETY [None]
  - DEPRESSION [None]
  - CONDITION AGGRAVATED [None]
  - ANGER [None]
  - FRUSTRATION [None]
  - HOT FLUSH [None]
  - TIC [None]
  - SLEEP APNOEA SYNDROME [None]
  - DRY EYE [None]
  - PHOTOREFRACTIVE KERATECTOMY [None]
  - DEEP VEIN THROMBOSIS [None]
  - ACUTE SINUSITIS [None]
  - MIGRAINE [None]
  - BORDERLINE GLAUCOMA [None]
  - OEDEMA PERIPHERAL [None]
  - UTERINE LEIOMYOMA [None]
  - VULVA CYST [None]
  - THYROID CYST [None]
  - MUSCLE TIGHTNESS [None]
  - PARANASAL CYST [None]
  - MENOPAUSE [None]
